FAERS Safety Report 10268720 (Version 1)
Quarter: 2014Q2

REPORT INFORMATION
  Report Type: Spontaneous
  Country: US (occurrence: US)
  Receive Date: 20140630
  Receipt Date: 20140630
  Transmission Date: 20141212
  Serious: No
  Sender: FDA-Public Use
  Company Number: US-TEVA-491157USA

PATIENT
  Age: 63 Year
  Sex: Male
  Weight: 82.63 kg

DRUGS (1)
  1. NUVIGIL [Suspect]
     Indication: SOMNOLENCE
     Dates: start: 20140616

REACTIONS (1)
  - Chromaturia [Not Recovered/Not Resolved]
